FAERS Safety Report 5304141-6 (Version None)
Quarter: 2007Q2

REPORT INFORMATION
  Report Type: 
  Country: None (occurrence: None)
  Receive Date: 20070423
  Receipt Date: 20070410
  Transmission Date: 20071010
  Serious: Yes (Other)
  Sender: FDA-Public Use
  Company Number: PHFR2007GB00755

PATIENT
  Age: 56 Year
  Sex: Female
  Weight: 82.539 kg

DRUGS (2)
  1. GLEEVEC [Suspect]
     Indication: CHRONIC MYELOID LEUKAEMIA
     Route: 065
  2. CAPTOPRIL [Suspect]
     Route: 065

REACTIONS (3)
  - EYE SWELLING [None]
  - LICHENOID KERATOSIS [None]
  - RASH [None]
